FAERS Safety Report 23229601 (Version 1)
Quarter: 2023Q4

REPORT INFORMATION
  Report Type: Spontaneous
  Country: US (occurrence: None)
  Receive Date: 20231127
  Receipt Date: 20231127
  Transmission Date: 20240110
  Serious: No
  Sender: FDA-Public Use
  Company Number: US-ROCHE-3360725

PATIENT

DRUGS (6)
  1. PULMOZYME [Suspect]
     Active Substance: DORNASE ALFA
     Indication: Product used for unknown indication
     Route: 065
  2. IVERMECTIN [Concomitant]
     Active Substance: IVERMECTIN
  3. ZITHROMAX [Concomitant]
     Active Substance: AZITHROMYCIN DIHYDRATE
  4. NYSTATIN [Concomitant]
     Active Substance: NYSTATIN
  5. ATOVAQUONE [Concomitant]
     Active Substance: ATOVAQUONE
  6. NALTREXONE [Concomitant]
     Active Substance: NALTREXONE

REACTIONS (1)
  - Productive cough [Unknown]
